FAERS Safety Report 7237174-3 (Version None)
Quarter: 2011Q1

REPORT INFORMATION
  Report Type: 
  Country: None (occurrence: None)
  Receive Date: 20110121
  Receipt Date: 20110110
  Transmission Date: 20110831
  Serious: No
  Sender: FDA-Public Use
  Company Number: PHHY2010CA80349

PATIENT
  Sex: Female

DRUGS (3)
  1. REMERON [Concomitant]
  2. ACLASTA [Suspect]
     Indication: OSTEOPOROSIS
     Dosage: UNK
     Route: 042
     Dates: start: 20091118
  3. ESTRATEST [Concomitant]
     Dosage: UNK

REACTIONS (1)
  - TOOTH FRACTURE [None]
